FAERS Safety Report 13625823 (Version 1)
Quarter: 2017Q2

REPORT INFORMATION
  Report Type: Spontaneous
  Country: PE (occurrence: PE)
  Receive Date: 20170607
  Receipt Date: 20170607
  Transmission Date: 20170830
  Serious: Yes (Other)
  Sender: FDA-Public Use
  Company Number: PE-PFIZER INC-2017247158

PATIENT
  Age: 79 Year
  Sex: Female

DRUGS (3)
  1. LYRICA [Suspect]
     Active Substance: PREGABALIN
     Indication: NEUROPATHY PERIPHERAL
     Dosage: 225 MG (ONE CAPSULE OF 75 MG AND ONE CAPSULE OF 150MG), DAILY
  2. LYRICA [Suspect]
     Active Substance: PREGABALIN
     Indication: PAIN
  3. DULOXETINA /01749301/ [Concomitant]
     Indication: NEUROPATHY PERIPHERAL
     Dosage: UNK

REACTIONS (4)
  - Spinal disorder [Unknown]
  - Liver disorder [Unknown]
  - Diabetes mellitus [Unknown]
  - Hypoacusis [Unknown]
